FAERS Safety Report 26036086 (Version 1)
Quarter: 2025Q4

REPORT INFORMATION
  Report Type: Spontaneous
  Country: EU (occurrence: EU)
  Receive Date: 20251112
  Receipt Date: 20251112
  Transmission Date: 20260118
  Serious: Yes (Other)
  Sender: ALCON
  Company Number: EU-ALCON LABORATORIES-ALC2025FR006385

PATIENT

DRUGS (1)
  1. CYCLOPENTOLATE [Suspect]
     Active Substance: CYCLOPENTOLATE
     Indication: Ophthalmological examination
     Dosage: DANS CHAQUE OEIL
     Dates: start: 20250929, end: 20250929

REACTIONS (2)
  - Mydriasis [Recovering/Resolving]
  - Headache [Recovered/Resolved]

NARRATIVE: CASE EVENT DATE: 20250929
